FAERS Safety Report 5448194-3 (Version None)
Quarter: 2007Q3

REPORT INFORMATION
  Report Type: 
  Country: None (occurrence: None)
  Receive Date: 20070906
  Receipt Date: 20070822
  Transmission Date: 20080115
  Serious: Yes (Other)
  Sender: FDA-Public Use
  Company Number: 2007BM000108

PATIENT
  Age: 2 Month
  Sex: Female

DRUGS (2)
  1. PREDNISOLONE [Suspect]
     Dosage: 15 MG;BID
  2. ORAPRED [Suspect]

REACTIONS (8)
  - ABSCESS [None]
  - CELLULITIS ORBITAL [None]
  - DISEASE RECURRENCE [None]
  - DISORDER OF ORBIT [None]
  - HAEMANGIOMA [None]
  - IMPAIRED HEALING [None]
  - INFECTION [None]
  - NO THERAPEUTIC RESPONSE [None]
